FAERS Safety Report 9221531 (Version 1)
Quarter: 2013Q2

REPORT INFORMATION
  Report Type: Spontaneous
  Country: US (occurrence: US)
  Receive Date: 20130410
  Receipt Date: 20130410
  Transmission Date: 20140414
  Serious: Yes (Other)
  Sender: FDA-Public Use
  Company Number: US-SHIRE-ALL1-2013-02090

PATIENT
  Age: 10 Year
  Sex: Male
  Weight: 37.19 kg

DRUGS (3)
  1. INTUNIV [Suspect]
     Indication: ATTENTION DEFICIT/HYPERACTIVITY DISORDER
     Dosage: 4 MG, 1X/DAY:QD
     Route: 048
     Dates: start: 20130329, end: 20130330
  2. INTUNIV [Suspect]
     Dosage: UNK, 1X/DAY:QD
     Route: 048
     Dates: start: 20130331, end: 20130331
  3. RISPERDAL [Concomitant]
     Indication: AGGRESSION
     Dosage: 0.25 MG, 2X/DAY:BID
     Route: 048
     Dates: start: 201302

REACTIONS (7)
  - Blindness [Not Recovered/Not Resolved]
  - Somnolence [Not Recovered/Not Resolved]
  - Gait disturbance [Not Recovered/Not Resolved]
  - Disturbance in social behaviour [Not Recovered/Not Resolved]
  - Incorrect dose administered [Recovered/Resolved]
  - Drug prescribing error [Recovered/Resolved]
  - Dizziness [Not Recovered/Not Resolved]
